FAERS Safety Report 24710003 (Version 1)
Quarter: 2024Q4

REPORT INFORMATION
  Report Type: Spontaneous
  Country: ZA (occurrence: ZA)
  Receive Date: 20241209
  Receipt Date: 20241209
  Transmission Date: 20250114
  Serious: Yes (Other)
  Sender: AMGEN
  Company Number: ZA-PFIZER INC-PV202300129526

PATIENT
  Age: 60 Year
  Sex: Female

DRUGS (1)
  1. ENBREL [Suspect]
     Active Substance: ETANERCEPT
     Indication: Product used for unknown indication
     Dosage: 50 MG, WEEKLY
     Route: 058
     Dates: start: 20230708

REACTIONS (3)
  - Knee arthroplasty [Unknown]
  - Influenza like illness [Recovered/Resolved]
  - Post procedural infection [Unknown]

NARRATIVE: CASE EVENT DATE: 20230701
